FAERS Safety Report 23945878 (Version 1)
Quarter: 2024Q2

REPORT INFORMATION
  Report Type: Spontaneous
  Country: US (occurrence: US)
  Receive Date: 20240606
  Receipt Date: 20240606
  Transmission Date: 20240715
  Serious: No
  Sender: FDA-Public Use
  Company Number: US-B.Braun Medical Inc.-2157842

PATIENT
  Age: 34 Year
  Sex: Female
  Weight: 76 kg

DRUGS (1)
  1. BUPIVACAINE HYDROCHLORIDE [Suspect]
     Active Substance: BUPIVACAINE HYDROCHLORIDE\BUPIVACAINE HYDROCHLORIDE ANHYDROUS
     Indication: Caesarean section

REACTIONS (1)
  - Anaesthetic complication [Recovered/Resolved]
